FAERS Safety Report 25532892 (Version 1)
Quarter: 2025Q3

REPORT INFORMATION
  Report Type: Spontaneous
  Country: US (occurrence: US)
  Receive Date: 20250709
  Receipt Date: 20250709
  Transmission Date: 20251021
  Serious: No
  Sender: NOVARTIS
  Company Number: US-002147023-NVSC2025US105614

PATIENT
  Sex: Male

DRUGS (1)
  1. MEKINIST [Suspect]
     Active Substance: TRAMETINIB DIMETHYL SULFOXIDE
     Indication: Langerhans^ cell histiocytosis
     Dosage: 2.8 ML, QD (ORAL SOLUTION)
     Route: 048
     Dates: start: 202408

REACTIONS (4)
  - Product dose omission issue [Unknown]
  - Product distribution issue [Unknown]
  - Pyrexia [Unknown]
  - Product storage error [Unknown]
